FAERS Safety Report 6127737-0 (Version None)
Quarter: 2009Q1

REPORT INFORMATION
  Report Type: 
  Country: None (occurrence: None)
  Receive Date: 20090323
  Receipt Date: 20090309
  Transmission Date: 20090719
  Serious: Yes (Other)
  Sender: FDA-Public Use
  Company Number: JAGER24994

PATIENT
  Sex: Female

DRUGS (2)
  1. NIZORAL [Suspect]
     Indication: DRUG USE FOR UNKNOWN INDICATION
     Route: 048
     Dates: end: 19940726
  2. ZYRTEC [Suspect]
     Indication: DRUG USE FOR UNKNOWN INDICATION
     Route: 048
     Dates: end: 19940726

REACTIONS (4)
  - DRUG EXPOSURE DURING PREGNANCY [None]
  - FOETAL GROWTH RETARDATION [None]
  - HELLP SYNDROME [None]
  - PREMATURE LABOUR [None]
